FAERS Safety Report 25698648 (Version 2)
Quarter: 2025Q3

REPORT INFORMATION
  Report Type: Report from Study
  Country: PH (occurrence: PH)
  Receive Date: 20250819
  Receipt Date: 20250908
  Transmission Date: 20251020
  Serious: Yes (Hospitalization)
  Sender: ROCHE
  Company Number: PH-ROCHE-10000360178

PATIENT
  Age: 72 Year
  Sex: Male

DRUGS (1)
  1. ROZLYTREK [Suspect]
     Active Substance: ENTRECTINIB
     Indication: Product used for unknown indication
     Route: 065
     Dates: start: 20250628, end: 20250710

REACTIONS (8)
  - Asthenia [Unknown]
  - Haematochezia [Unknown]
  - Ulcer haemorrhage [Unknown]
  - Blood pressure decreased [Unknown]
  - Pulmonary embolism [Unknown]
  - Chills [Unknown]
  - Pyrexia [Unknown]
  - Helicobacter infection [Unknown]

NARRATIVE: CASE EVENT DATE: 20250704
